FAERS Safety Report 7121098-6 (Version None)
Quarter: 2010Q4

REPORT INFORMATION
  Report Type: 
  Country: None (occurrence: None)
  Receive Date: 20101124
  Receipt Date: 20100628
  Transmission Date: 20110411
  Serious: No
  Sender: FDA-Public Use
  Company Number: US-PFIZER INC-2010080730

PATIENT
  Sex: Female
  Weight: 59 kg

DRUGS (10)
  1. TIKOSYN [Suspect]
     Indication: ATRIAL FIBRILLATION
     Dosage: 250 MG, 2X/DAY
     Route: 048
     Dates: start: 20100425
  2. PREVACID [Suspect]
     Dosage: 30 MG, DAILY
     Route: 048
     Dates: end: 20100626
  3. PROMETHEGAN [Suspect]
     Indication: NAUSEA
     Dosage: 25 MG, DAILY BEFORE GOING TO BED
     Dates: start: 20100101, end: 20100101
  4. CELEBREX [Concomitant]
     Indication: BACK DISORDER
     Dosage: 200 MG, DAILY
     Route: 048
  5. FUROSEMIDE [Concomitant]
     Indication: PERICARDIAL EFFUSION
     Dosage: 20 MG, DAILY
  6. POTASSIUM [Concomitant]
     Indication: HYPOKALAEMIA
     Dosage: 10 MG, DAILY
  7. PREDNISONE [Concomitant]
     Indication: PAIN
     Dosage: 5 MG, DAILY
  8. FISH OIL [Concomitant]
     Indication: CARDIAC DISORDER
     Dosage: DAILY
  9. VITAMIN E [Concomitant]
     Dosage: DAILY
  10. TYLENOL (CAPLET) [Concomitant]
     Indication: PAIN
     Dosage: TWO PILLS TOGETHER IN MORNING

REACTIONS (2)
  - DIZZINESS [None]
  - NAUSEA [None]
